FAERS Safety Report 12635065 (Version 3)
Quarter: 2016Q3

REPORT INFORMATION
  Report Type: Spontaneous
  Country: US (occurrence: US)
  Receive Date: 20160809
  Receipt Date: 20160914
  Transmission Date: 20161109
  Serious: No
  Sender: FDA-Public Use
  Company Number: US-TEVA-680320USA

PATIENT
  Sex: Male

DRUGS (3)
  1. PROVIGIL [Suspect]
     Active Substance: MODAFINIL
     Indication: DEPRESSED LEVEL OF CONSCIOUSNESS
     Dates: start: 20131101
  2. PROVIGIL [Suspect]
     Active Substance: MODAFINIL
     Indication: DISTURBANCE IN ATTENTION
  3. NUVIGIL [Suspect]
     Active Substance: ARMODAFINIL
     Route: 048

REACTIONS (7)
  - Insomnia [Unknown]
  - Incorrect dose administered [Unknown]
  - Drug ineffective [Unknown]
  - Disturbance in attention [Unknown]
  - Headache [Unknown]
  - Feeling abnormal [Unknown]
  - Asthenia [Unknown]

NARRATIVE: CASE EVENT DATE: 201311
